FAERS Safety Report 5841989-3 (Version None)
Quarter: 2008Q3

REPORT INFORMATION
  Report Type: 
  Country: None (occurrence: None)
  Receive Date: 20080811
  Receipt Date: 20080811
  Transmission Date: 20090109
  Serious: Yes (Hospitalization, Other)
  Sender: FDA-Public Use
  Company Number: None

PATIENT
  Age: 51 Year
  Sex: Male
  Weight: 120.2032 kg

DRUGS (1)
  1. AMITRIPTYLINE HCL [Suspect]
     Indication: PAIN
     Dosage: 25 MG ONCE PO;  50 MG ONCE PO
     Route: 048
     Dates: start: 20080717, end: 20080719

REACTIONS (9)
  - ABNORMAL DREAMS [None]
  - CONFUSIONAL STATE [None]
  - DISTURBANCE IN ATTENTION [None]
  - DYSARTHRIA [None]
  - HALLUCINATION [None]
  - POOR QUALITY SLEEP [None]
  - SOMNOLENCE [None]
  - SPEECH DISORDER [None]
  - TRANSIENT ISCHAEMIC ATTACK [None]
